FAERS Safety Report 24450033 (Version 1)
Quarter: 2024Q4

REPORT INFORMATION
  Report Type: Spontaneous
  Country: RU (occurrence: RU)
  Receive Date: 20241017
  Receipt Date: 20241017
  Transmission Date: 20250115
  Serious: Yes (Other)
  Sender: GILEAD
  Company Number: RU-GILEAD-2024-0690892

PATIENT
  Age: 58 Year
  Sex: Female

DRUGS (1)
  1. EPCLUSA [Suspect]
     Active Substance: SOFOSBUVIR\VELPATASVIR
     Indication: Hepatitis C
     Dosage: 1 DOSAGE FORM, QD [400 MG/100 MG 1 TABLET ONCE A DAY WITHOUT RIBAVIRIN]
     Route: 065
     Dates: start: 202301

REACTIONS (1)
  - Pneumonia [Unknown]
